FAERS Safety Report 20935780 (Version 2)
Quarter: 2022Q3

REPORT INFORMATION
  Report Type: Other
  Country: CA (occurrence: None)
  Receive Date: 20220609
  Receipt Date: 20220716
  Transmission Date: 20221027
  Serious: Yes (Other)
  Sender: FDA-Public Use
  Company Number: CA-ROCHE-3111611

PATIENT
  Sex: Male

DRUGS (1)
  1. OCREVUS [Suspect]
     Active Substance: OCRELIZUMAB
     Indication: Multiple sclerosis
     Route: 042
     Dates: start: 20220106

REACTIONS (5)
  - Seizure [Unknown]
  - COVID-19 [Recovered/Resolved]
  - Scab [Not Recovered/Not Resolved]
  - Drug hypersensitivity [Unknown]
  - Arthropod bite [Not Recovered/Not Resolved]
